FAERS Safety Report 15851858 (Version 3)
Quarter: 2019Q2

REPORT INFORMATION
  Report Type: Spontaneous
  Country: US (occurrence: US)
  Receive Date: 20190122
  Receipt Date: 20190523
  Transmission Date: 20190711
  Serious: Yes (Other)
  Sender: FDA-Public Use
  Company Number: PHEH2019US002538

PATIENT
  Sex: Female

DRUGS (2)
  1. TELOTRISTAT ETHYL [Suspect]
     Active Substance: TELOTRISTAT ETHYL
     Indication: METASTASES TO LUNG
     Dosage: 250 MG, TID
     Route: 048
     Dates: start: 20170606
  2. AFINITOR [Suspect]
     Active Substance: EVEROLIMUS
     Indication: METASTASES TO LUNG
     Dosage: 10 MG, QD
     Route: 048
     Dates: start: 201708

REACTIONS (15)
  - Head titubation [Unknown]
  - Rash [Unknown]
  - Abnormal sensation in eye [Unknown]
  - Memory impairment [Unknown]
  - Psychomotor skills impaired [Unknown]
  - Neuropathy peripheral [Unknown]
  - Peripheral swelling [Unknown]
  - Dry skin [Unknown]
  - Blister [Unknown]
  - Fatigue [Unknown]
  - Dysgeusia [Unknown]
  - Urinary tract infection [Unknown]
  - Acne [Unknown]
  - Weight fluctuation [Unknown]
  - Blood glucose increased [Unknown]
